FAERS Safety Report 9861298 (Version 1)
Quarter: 2014Q1

REPORT INFORMATION
  Report Type: Spontaneous
  Country: US (occurrence: US)
  Receive Date: 20140202
  Receipt Date: 20140202
  Transmission Date: 20141002
  Serious: No
  Sender: FDA-Public Use
  Company Number: US-ALLERGAN-1304578US

PATIENT
  Age: 39 Year
  Sex: Female

DRUGS (3)
  1. BOTOX COSMETIC [Suspect]
     Indication: SKIN WRINKLING
     Dosage: 19 UNITS, SINGLE
     Route: 030
     Dates: start: 20130314, end: 20130314
  2. BOTOX COSMETIC [Suspect]
     Indication: SKIN WRINKLING
     Dosage: 11 UNITS, SINGLE
     Route: 030
     Dates: start: 20130314, end: 20130314
  3. ZYRTEC                             /00884302/ [Concomitant]
     Indication: HYPERSENSITIVITY
     Dosage: UNK

REACTIONS (3)
  - Discomfort [Unknown]
  - Sinusitis [Unknown]
  - Wrong technique in drug usage process [Unknown]
